FAERS Safety Report 20487392 (Version 1)
Quarter: 2022Q1

REPORT INFORMATION
  Report Type: Spontaneous
  Country: BE (occurrence: BE)
  Receive Date: 20220218
  Receipt Date: 20220218
  Transmission Date: 20220423
  Serious: Yes (Hospitalization)
  Sender: FDA-Public Use
  Company Number: BE-STRIDES ARCOLAB LIMITED-2022SP001400

PATIENT
  Age: 30 Year
  Sex: Female

DRUGS (17)
  1. CLARITHROMYCIN [Suspect]
     Active Substance: CLARITHROMYCIN
     Indication: Fracture infection
     Dosage: 500 MILLIGRAM, EVERY 12 HRS; DAYS 175-709
     Route: 048
     Dates: start: 2016, end: 2018
  2. MEROPENEM [Suspect]
     Active Substance: MEROPENEM
     Indication: Fracture infection
     Dosage: UNK UNK, EVERY 4 HRS (UP TO 2 G; DAY 4-70 AND DAY 175-709) (HIGH-DOSE)
     Route: 042
     Dates: start: 2016, end: 2018
  3. COLISTIN [Suspect]
     Active Substance: COLISTIN
     Indication: Fracture infection
     Dosage: UNK (UP TO 20 MIU;EVERY 24 HRS; DAY 4-70; DAYS; DAYS 71-84 AND DAYS 175-709)
     Route: 042
     Dates: start: 2016, end: 2018
  4. FLUCLOXACILLIN [Suspect]
     Active Substance: FLUCLOXACILLIN
     Indication: Fracture infection
     Dosage: 2 GRAM, EVERY 4 HRS; DAYS 175-709
     Route: 042
     Dates: start: 2016, end: 2018
  5. COTRIMOXAZOLE [Suspect]
     Active Substance: SULFAMETHOXAZOLE\TRIMETHOPRIM
     Indication: Fracture infection
     Dosage: 1660 MILLIGRAM, EVERY 12 HRS; DAYS 175-709
     Route: 048
     Dates: start: 2016, end: 2018
  6. RIFAMPIN [Suspect]
     Active Substance: RIFAMPIN
     Indication: Fracture infection
     Dosage: 450 MILLIGRAM; EVERY 24 HRS; DAYS 175-709
     Route: 048
     Dates: start: 2016, end: 2018
  7. ETHAMBUTOL [Suspect]
     Active Substance: ETHAMBUTOL HYDROCHLORIDE
     Indication: Fracture infection
     Dosage: 1200 MILLIGRAM; EVERY 24 HRS; DAYS 175-709
     Route: 048
     Dates: start: 2016, end: 2018
  8. AMOXICILLIN\CLAVULANIC ACID [Concomitant]
     Active Substance: AMOXICILLIN\CLAVULANIC ACID
     Indication: Fracture infection
     Dosage: UNK
     Route: 065
     Dates: start: 2016
  9. PIPERACILLIN SODIUM\TAZOBACTAM SODIUM [Concomitant]
     Active Substance: PIPERACILLIN SODIUM\TAZOBACTAM SODIUM
     Indication: Fracture infection
     Dosage: 4.5 GRAM, EVERY 6 HRS; DAY 4-70
     Route: 042
     Dates: start: 2016, end: 2016
  10. AMIKACIN [Concomitant]
     Active Substance: AMIKACIN
     Indication: Fracture infection
     Dosage: 1800 MILLIGRAM; EVERY 24 HRS; DAY 4-70
     Route: 042
     Dates: start: 2016, end: 2016
  11. AMPHOTERICIN B [Concomitant]
     Active Substance: AMPHOTERICIN B
     Indication: Mucormycosis
     Dosage: 60 MILLIGRAM; EVERY 24 HRS; DAY 20-62
     Route: 042
     Dates: start: 2016, end: 2016
  12. NIVOLUMAB [Concomitant]
     Active Substance: NIVOLUMAB
     Indication: Mucormycosis
     Dosage: UNK
     Route: 065
     Dates: start: 2016
  13. INTERFERON GAMMA [Concomitant]
     Active Substance: INTERFERON GAMMA
     Indication: Mucormycosis
     Dosage: UNK
     Route: 065
     Dates: start: 2016
  14. VANCOMYCIN [Concomitant]
     Active Substance: VANCOMYCIN
     Indication: Fracture infection
     Dosage: 30 MILLIGRAM/KILOGRAM PER DAY; DAY 4-70
     Route: 042
     Dates: start: 2016, end: 2016
  15. POSACONAZOLE [Concomitant]
     Active Substance: POSACONAZOLE
     Indication: Fracture infection
     Dosage: 200 MILLIGRAM, EVERY 8 HRS; DAY 20-62
     Route: 048
     Dates: start: 2016, end: 2016
  16. GENTAMICIN [Concomitant]
     Active Substance: GENTAMICIN
     Indication: Fracture infection
     Dosage: 400 MILLIGRAM; EVERY 24 HRS; DAY 4-70
     Route: 042
     Dates: start: 2016, end: 2016
  17. FOSFOMYCIN [Concomitant]
     Active Substance: FOSFOMYCIN
     Indication: Fracture infection
     Dosage: 4 GRAM, EVERY 4 HRS; DAY 4-70 AND DAY 71-84
     Route: 042
     Dates: start: 2016, end: 2016

REACTIONS (2)
  - Impaired healing [Recovered/Resolved]
  - Treatment failure [Unknown]

NARRATIVE: CASE EVENT DATE: 20160101
